FAERS Safety Report 6844733-6 (Version None)
Quarter: 2010Q3

REPORT INFORMATION
  Report Type: 
  Country: None (occurrence: None)
  Receive Date: 20100712
  Receipt Date: 20100701
  Transmission Date: 20110219
  Serious: Yes (Death, Hospitalization, Other)
  Sender: FDA-Public Use
  Company Number: 2010AC000473

PATIENT
  Age: 86 Year
  Sex: Female

DRUGS (8)
  1. DIGOXIN [Suspect]
     Dosage: 0.125 MG;PO
     Route: 048
  2. DIGOXIN [Suspect]
     Dosage: 0.25 MG;QD;PO
     Route: 048
     Dates: start: 20060607, end: 20080131
  3. LASIX [Concomitant]
  4. TOPROL-XL [Concomitant]
  5. PROCARDIA [Concomitant]
  6. CARDIZEM [Concomitant]
  7. COUMADIN [Concomitant]
  8. RESTORIL [Concomitant]

REACTIONS (11)
  - AORTIC ARTERIOSCLEROSIS [None]
  - ATRIAL FIBRILLATION [None]
  - CARDIAC FLUTTER [None]
  - CARDIOVASCULAR DISORDER [None]
  - DECREASED APPETITE [None]
  - DISEASE COMPLICATION [None]
  - DIZZINESS [None]
  - FATIGUE [None]
  - JOINT SWELLING [None]
  - MITRAL VALVE INCOMPETENCE [None]
  - TRICUSPID VALVE INCOMPETENCE [None]
